FAERS Safety Report 7356039-X (Version None)
Quarter: 2011Q1

REPORT INFORMATION
  Report Type: 
  Country: None (occurrence: None)
  Receive Date: 20110316
  Receipt Date: 20110310
  Transmission Date: 20110831
  Serious: Yes (Life-Threatening, Hospitalization)
  Sender: FDA-Public Use
  Company Number: US-EISAI INC-E7389-01094-CLI-US

PATIENT
  Sex: Male

DRUGS (14)
  1. E7389 (BOLD) [Suspect]
     Indication: NON-SMALL CELL LUNG CANCER
     Route: 041
     Dates: start: 20101203, end: 20110121
  2. PEMETREXED [Concomitant]
     Indication: NON-SMALL CELL LUNG CANCER
     Dates: start: 20101203, end: 20110114
  3. FOLIC ACID [Concomitant]
     Route: 048
     Dates: start: 20100212
  4. POTASSIUM [Concomitant]
     Indication: SUPPLEMENTATION THERAPY
     Dosage: UNKNOWN
     Route: 048
     Dates: start: 20100625
  5. AMBIEN [Concomitant]
     Indication: INSOMNIA
     Route: 048
     Dates: start: 20080815
  6. ZOCOR [Concomitant]
     Route: 048
     Dates: start: 20101004
  7. POLYETHYLENE GLYCOL [Concomitant]
     Indication: CONSTIPATION
     Route: 048
     Dates: start: 20080701
  8. SPIRIVA [Concomitant]
     Indication: CHRONIC OBSTRUCTIVE PULMONARY DISEASE
     Dates: start: 20100326
  9. VALTREX [Concomitant]
     Route: 048
     Dates: start: 20090127
  10. ALOXI [Concomitant]
     Indication: PREMEDICATION
     Route: 042
     Dates: start: 20101203
  11. FLOVENT [Concomitant]
     Indication: CHRONIC OBSTRUCTIVE PULMONARY DISEASE
     Route: 048
     Dates: start: 20100212
  12. NORVASC [Concomitant]
     Indication: HYPERTENSION
     Route: 048
     Dates: start: 20091121
  13. VIAGRA [Concomitant]
     Indication: ERECTILE DYSFUNCTION
     Route: 048
     Dates: start: 20040101
  14. CYANOCOBALAMIN [Concomitant]
     Indication: VITAMIN B COMPLEX DEFICIENCY
     Route: 042
     Dates: start: 20100702

REACTIONS (1)
  - PNEUMONIA [None]
